FAERS Safety Report 4849524-3 (Version None)
Quarter: 2005Q4

REPORT INFORMATION
  Report Type: 
  Country: None (occurrence: None)
  Receive Date: 20051207
  Receipt Date: 20051201
  Transmission Date: 20060501
  Serious: Yes (Death)
  Sender: FDA-Public Use
  Company Number: A001-OCT-3901

PATIENT
  Sex: Female

DRUGS (18)
  1. ARICEPT [Suspect]
     Indication: DEMENTIA ALZHEIMER'S TYPE
     Dosage: 1 IN 1 D, ORAL
     Route: 048
     Dates: start: 20031015, end: 20040104
  2. EPREX [Concomitant]
  3. LOSFERRON (SIDROS) [Concomitant]
  4. NEORECORMON (EPOETIN BETA) [Concomitant]
  5. CORSODYL (CHLORHEXIDINE GLUCONATE) [Concomitant]
  6. CORUNO [Concomitant]
  7. ASPIRIN [Concomitant]
  8. FERO-GRADUMET                 (FERROUS SULFATE) [Concomitant]
  9. HYPERLIPEN        (CIPROFIBRATE) [Concomitant]
  10. BECOZYME          (BECOZYME) [Concomitant]
  11. REDOMEX            (AMITRIPTYLINE HYDROCHLORIDE) [Concomitant]
  12. D-CURE        (COLECALCIFEROL) [Concomitant]
  13. FRAXIPARINE              (HEPARIN-FRACTION, CALCIUM SALT) [Concomitant]
  14. ACETAMINOPHEN [Concomitant]
  15. NEXIUM [Concomitant]
  16. MIXTARD             (INITARD) [Concomitant]
  17. CORVATARD          (MOLSIDOMINE) [Concomitant]
  18. DISPRIL                (ACETYLSALICYLIC ACID) [Concomitant]

REACTIONS (1)
  - CEREBRAL HAEMORRHAGE [None]
